FAERS Safety Report 13801807 (Version 1)
Quarter: 2017Q3

REPORT INFORMATION
  Report Type: Report from Study
  Country: NO (occurrence: NO)
  Receive Date: 20170727
  Receipt Date: 20170727
  Transmission Date: 20171127
  Serious: Yes (Other)
  Sender: FDA-Public Use
  Company Number: NO-ROCHE-1910496

PATIENT
  Sex: Female

DRUGS (1)
  1. CAPECITABINE. [Suspect]
     Active Substance: CAPECITABINE
     Indication: BREAST CANCER
     Dosage: ON DAYS 1 TO 14 EVERY 21 DAYS.
     Route: 048

REACTIONS (3)
  - Gastrointestinal toxicity [Unknown]
  - Palmar-plantar erythrodysaesthesia syndrome [Unknown]
  - Haematotoxicity [Unknown]
